FAERS Safety Report 4312020-6 (Version None)
Quarter: 2004Q1

REPORT INFORMATION
  Report Type: 
  Country: None (occurrence: None)
  Receive Date: 20040303
  Receipt Date: 20040224
  Transmission Date: 20041129
  Serious: Yes (Hospitalization)
  Sender: FDA-Public Use
  Company Number: 200410056BVD

PATIENT
  Age: 63 Year
  Sex: Female

DRUGS (5)
  1. AVELOX [Suspect]
     Indication: CHRONIC OBSTRUCTIVE AIRWAYS DISEASE EXACERBATED
     Dosage: 400 MG, TOTAL DAILY, ORAL
     Route: 048
     Dates: start: 20031118, end: 20031130
  2. OMEP [Concomitant]
  3. BRONCHORETARD [Concomitant]
  4. SPASMO-MUCOSOLVAN [Concomitant]
  5. SULTANOL [Concomitant]

REACTIONS (10)
  - CARDIAC IMAGING PROCEDURE ABNORMAL [None]
  - COUGH [None]
  - GENERAL PHYSICAL HEALTH DETERIORATION [None]
  - HEPATIC STEATOSIS [None]
  - HEPATITIS TOXIC [None]
  - MITRAL VALVE INCOMPETENCE [None]
  - PULMONARY FIBROSIS [None]
  - TACHYCARDIA [None]
  - TRICUSPID VALVE INCOMPETENCE [None]
  - WHITE BLOOD CELL COUNT INCREASED [None]
